FAERS Safety Report 21310912 (Version 1)
Quarter: 2022Q3

REPORT INFORMATION
  Report Type: Spontaneous
  Country: US (occurrence: None)
  Receive Date: 20220909
  Receipt Date: 20220909
  Transmission Date: 20221026
  Serious: Yes (Other)
  Sender: FDA-Public Use
  Company Number: 2022A304968

PATIENT
  Sex: Female

DRUGS (2)
  1. CALQUENCE [Suspect]
     Active Substance: ACALABRUTINIB
     Route: 048
  2. OMEPRAZOLE [Suspect]
     Active Substance: OMEPRAZOLE
     Indication: Gastrooesophageal reflux disease
     Route: 048

REACTIONS (12)
  - Chronic lymphocytic leukaemia [Unknown]
  - Full blood count decreased [Unknown]
  - Chronic lymphocytic leukaemia [Unknown]
  - Contusion [Unknown]
  - Pain in extremity [Unknown]
  - Gingival bleeding [Unknown]
  - Oral pain [Unknown]
  - Haemorrhoids [Unknown]
  - Constipation [Unknown]
  - Gastrooesophageal reflux disease [Unknown]
  - Quality of life decreased [Unknown]
  - Product use issue [Unknown]
